FAERS Safety Report 9596249 (Version 1)
Quarter: 2013Q4

REPORT INFORMATION
  Report Type: Spontaneous
  Country: US (occurrence: US)
  Receive Date: 20131004
  Receipt Date: 20131004
  Transmission Date: 20140711
  Serious: No
  Sender: FDA-Public Use
  Company Number: US-009507513-1310USA000529

PATIENT
  Age: 2 Year
  Sex: Male
  Weight: 19.48 kg

DRUGS (3)
  1. CLARITIN ORAL SOLUTION [Suspect]
     Indication: RHINORRHOEA
     Dosage: 5 MG, PRN
     Route: 048
  2. CLARITIN ORAL SOLUTION [Suspect]
     Dosage: 5 MG, ONCE
     Route: 048
     Dates: start: 20130921
  3. CLARITIN ORAL SOLUTION [Suspect]
     Dosage: 5 MG, ONCE
     Route: 048
     Dates: start: 20130921

REACTIONS (2)
  - Overdose [Recovering/Resolving]
  - No adverse event [Unknown]
